FAERS Safety Report 5921507-1 (Version None)
Quarter: 2008Q4

REPORT INFORMATION
  Report Type: 
  Country: None (occurrence: None)
  Receive Date: 20081017
  Receipt Date: 20081007
  Transmission Date: 20090506
  Serious: Yes (Hospitalization)
  Sender: FDA-Public Use
  Company Number: JP-JNJFOC-20081001594

PATIENT
  Age: 71 Year
  Sex: Male

DRUGS (5)
  1. CRAVIT [Suspect]
     Indication: EXCORIATION
  2. PONSTEL [Suspect]
     Indication: DRUG USE FOR UNKNOWN INDICATION
  3. GLYCORAN [Concomitant]
  4. GLIMICRON [Concomitant]
  5. BLOPRESS [Concomitant]

REACTIONS (3)
  - CONVULSION [None]
  - JAPAN COMA SCALE [None]
  - LOSS OF CONSCIOUSNESS [None]
